FAERS Safety Report 6231914-8 (Version None)
Quarter: 2009Q2

REPORT INFORMATION
  Report Type: 
  Country: None (occurrence: None)
  Receive Date: 20090616
  Receipt Date: 20090603
  Transmission Date: 20091009
  Serious: Yes (Other)
  Sender: FDA-Public Use
  Company Number: FR-BRISTOL-MYERS SQUIBB COMPANY-14646970

PATIENT
  Age: 7 Decade
  Sex: Female

DRUGS (5)
  1. ORENCIA [Suspect]
     Indication: RHEUMATOID ARTHRITIS
     Route: 042
     Dates: end: 20090603
  2. TEMESTA [Suspect]
     Route: 048
     Dates: end: 20090603
  3. ACTONEL [Suspect]
     Dates: end: 20090603
  4. CORTANCYL [Suspect]
     Dosage: 1 DF = 12.5 MG TO 15 MG
  5. RISPERDAL [Concomitant]
     Indication: AGITATION

REACTIONS (1)
  - HEPATITIS CHOLESTATIC [None]
